FAERS Safety Report 13238736 (Version 1)
Quarter: 2017Q1

REPORT INFORMATION
  Report Type: Spontaneous
  Country: US (occurrence: US)
  Receive Date: 20170216
  Receipt Date: 20170216
  Transmission Date: 20170428
  Serious: Yes (Other)
  Sender: FDA-Public Use
  Company Number: US-CLINIGEN GROUP PLC/ CLINIGEN HEALTHCARE LTD-E2B_00002721

PATIENT
  Age: 57 Year
  Sex: Male

DRUGS (28)
  1. ETHYOL [Suspect]
     Active Substance: AMIFOSTINE
     Indication: ADVERSE DRUG REACTION
     Dosage: 5XWEEK* 1 MONTH(S)
     Route: 065
     Dates: start: 19980518, end: 19980622
  2. ETHYOL [Suspect]
     Active Substance: AMIFOSTINE
     Indication: ADVERSE DRUG REACTION
     Dosage: 5XWEEK* 1 MONTH(S)
     Route: 065
     Dates: start: 19980518, end: 19980622
  3. ETHYOL [Suspect]
     Active Substance: AMIFOSTINE
     Indication: ADVERSE DRUG REACTION
     Dosage: 200 MG/M2 4 DAY(S)
     Route: 065
     Dates: start: 19980526, end: 19980529
  4. ETHYOL [Suspect]
     Active Substance: AMIFOSTINE
     Indication: ADVERSE DRUG REACTION
     Dosage: 200 MG/M2 4 DAY(S)
     Route: 065
     Dates: start: 19980526, end: 19980529
  5. ETHYOL [Suspect]
     Active Substance: AMIFOSTINE
     Indication: ADVERSE DRUG REACTION
     Dosage: 200 MG/M2 1 DAY(S)
     Route: 065
     Dates: start: 19980622, end: 19980622
  6. ETHYOL [Suspect]
     Active Substance: AMIFOSTINE
     Indication: ADVERSE DRUG REACTION
     Dosage: 200 MG/M2 1 DAY(S)
     Route: 065
     Dates: start: 19980622, end: 19980622
  7. ETHYOL [Suspect]
     Active Substance: AMIFOSTINE
     Indication: ADVERSE DRUG REACTION
     Dosage: 200 MG/M2 4 DAY(S)
     Route: 065
     Dates: start: 19980526, end: 19980529
  8. ETHYOL [Suspect]
     Active Substance: AMIFOSTINE
     Indication: ADVERSE DRUG REACTION
     Dosage: 200 MG/M2 4 DAY(S)
     Route: 065
     Dates: start: 19980526, end: 19980529
  9. ETHYOL [Suspect]
     Active Substance: AMIFOSTINE
     Indication: ADVERSE DRUG REACTION
     Dosage: 200 MG/M2 1 DAY(S)
     Route: 065
     Dates: start: 19980601, end: 19980601
  10. ETHYOL [Suspect]
     Active Substance: AMIFOSTINE
     Indication: ADVERSE DRUG REACTION
     Dosage: 200 MG/M2 1 DAY(S)
     Route: 065
     Dates: start: 19980622, end: 19980622
  11. ETHYOL [Suspect]
     Active Substance: AMIFOSTINE
     Indication: ADVERSE DRUG REACTION
     Dosage: 5XWEEK* 1 MONTH(S)
     Route: 065
     Dates: start: 19980518, end: 19980622
  12. ETHYOL [Suspect]
     Active Substance: AMIFOSTINE
     Indication: ADVERSE DRUG REACTION
     Dosage: 200 MG/M2 5 DAY(S)
     Route: 065
     Dates: start: 19980518, end: 19980522
  13. ETHYOL [Suspect]
     Active Substance: AMIFOSTINE
     Indication: ADVERSE DRUG REACTION
     Dosage: 200 MG/M2 5 DAY(S)
     Route: 065
     Dates: start: 19980518, end: 19980522
  14. ETHYOL [Suspect]
     Active Substance: AMIFOSTINE
     Indication: ADVERSE DRUG REACTION
     Dosage: 200 MG/M2 5 DAY(S)
     Route: 065
     Dates: start: 19980518, end: 19980522
  15. ETHYOL [Suspect]
     Active Substance: AMIFOSTINE
     Indication: ADVERSE DRUG REACTION
     Dosage: 200 MG/M2 1 DAY(S)
     Route: 065
     Dates: start: 19980622, end: 19980622
  16. RADIATION THERAPY [Concomitant]
     Active Substance: RADIATION THERAPY
     Dosage: UNK 4 DAY(S)
     Route: 065
     Dates: start: 19980526, end: 19980529
  17. ETHYOL [Suspect]
     Active Substance: AMIFOSTINE
     Indication: ADVERSE DRUG REACTION
     Dosage: 5XWEEK* 1 MONTH(S)
     Route: 065
     Dates: start: 19980518, end: 19980622
  18. ETHYOL [Suspect]
     Active Substance: AMIFOSTINE
     Indication: ADVERSE DRUG REACTION
     Dosage: 200 MG/M2 1 DAY(S)
     Route: 065
     Dates: start: 19980601, end: 19980601
  19. ETHYOL [Suspect]
     Active Substance: AMIFOSTINE
     Indication: ADVERSE DRUG REACTION
     Dosage: 200 MG/M2 1 DAY(S)
     Route: 065
     Dates: start: 19980601, end: 19980601
  20. ETHYOL [Suspect]
     Active Substance: AMIFOSTINE
     Indication: ADVERSE DRUG REACTION
     Dosage: 200 MG/M2 1 DAY(S)
     Route: 065
     Dates: start: 19980622, end: 19980622
  21. ETHYOL [Suspect]
     Active Substance: AMIFOSTINE
     Indication: ADVERSE DRUG REACTION
     Dosage: 200 MG/M2 4 DAY(S)
     Route: 065
     Dates: start: 19980526, end: 19980529
  22. RADIATION THERAPY [Concomitant]
     Active Substance: RADIATION THERAPY
     Dosage: UNK 5 DAY(S)
     Route: 065
     Dates: start: 19980518, end: 19980522
  23. RADIATION THERAPY [Concomitant]
     Active Substance: RADIATION THERAPY
     Dosage: UNK 1 DAY(S)
     Route: 065
     Dates: start: 19980601, end: 19980601
  24. ETHYOL [Suspect]
     Active Substance: AMIFOSTINE
     Indication: ADVERSE DRUG REACTION
     Dosage: 200 MG/M2 1 DAY(S)
     Route: 065
     Dates: start: 19980601, end: 19980601
  25. ETHYOL [Suspect]
     Active Substance: AMIFOSTINE
     Indication: ADVERSE DRUG REACTION
     Dosage: 5XWEEK* 1 MONTH(S)
     Route: 065
     Dates: start: 19980518, end: 19980622
  26. ETHYOL [Suspect]
     Active Substance: AMIFOSTINE
     Indication: ADVERSE DRUG REACTION
     Dosage: 200 MG/M2 5 DAY(S)
     Route: 065
     Dates: start: 19980518, end: 19980522
  27. ETHYOL [Suspect]
     Active Substance: AMIFOSTINE
     Indication: ADVERSE DRUG REACTION
     Dosage: 200 MG/M2 5 DAY(S)
     Route: 065
     Dates: start: 19980518, end: 19980522
  28. ETHYOL [Suspect]
     Active Substance: AMIFOSTINE
     Indication: ADVERSE DRUG REACTION
     Dosage: 200 MG/M2 1 DAY(S)
     Route: 065
     Dates: start: 19980601, end: 19980601

REACTIONS (5)
  - Anxiety [Unknown]
  - Nausea [Unknown]
  - Atrial fibrillation [Unknown]
  - Visual impairment [Unknown]
  - Malaise [Unknown]

NARRATIVE: CASE EVENT DATE: 199805
